FAERS Safety Report 12122063 (Version 1)
Quarter: 2016Q1

REPORT INFORMATION
  Report Type: Spontaneous
  Country: US (occurrence: US)
  Receive Date: 20160226
  Receipt Date: 20160226
  Transmission Date: 20160526
  Serious: No
  Sender: FDA-Public Use
  Company Number: US-ALLERGAN-1500496US

PATIENT
  Sex: Female
  Weight: 53.97 kg

DRUGS (2)
  1. REFRESH OPTIVE [Suspect]
     Active Substance: CARBOXYMETHYLCELLULOSE SODIUM\GLYCERIN
     Dosage: 2 GTT, BID
     Route: 047
     Dates: start: 20150302
  2. REFRESH OPTIVE [Suspect]
     Active Substance: CARBOXYMETHYLCELLULOSE SODIUM\GLYCERIN
     Indication: DRY EYE
     Dosage: 3-4 TIMES
     Route: 047
     Dates: start: 201408

REACTIONS (3)
  - Eye discharge [Unknown]
  - Product deposit [Unknown]
  - Medication residue present [Not Recovered/Not Resolved]
